FAERS Safety Report 4933725-X (Version None)
Quarter: 2006Q1

REPORT INFORMATION
  Report Type: 
  Country: None (occurrence: None)
  Receive Date: 20060306
  Receipt Date: 20060224
  Transmission Date: 20060701
  Serious: Yes (Disabling)
  Sender: FDA-Public Use
  Company Number: VE-ABBOTT-06P-178-0326526-00

PATIENT
  Age: 35 Year
  Sex: Male

DRUGS (4)
  1. VALCOTE ER [Suspect]
     Indication: MAJOR DEPRESSION
     Route: 048
     Dates: start: 20051101, end: 20060221
  2. PROPRANOLOL [Concomitant]
     Indication: HYPERTENSION
     Route: 048
  3. NIMODIPINE [Concomitant]
     Indication: DRUG USE FOR UNKNOWN INDICATION
     Route: 048
  4. LEXAPRO [Concomitant]
     Indication: MAJOR DEPRESSION
     Route: 048
     Dates: start: 20050501

REACTIONS (3)
  - AMNESIA [None]
  - HEMIANOPIA [None]
  - VISUAL ACUITY REDUCED [None]
